FAERS Safety Report 9032086 (Version 1)
Quarter: 2013Q1

REPORT INFORMATION
  Report Type: Spontaneous
  Country: US (occurrence: US)
  Receive Date: 20130122
  Receipt Date: 20130122
  Transmission Date: 20140127
  Serious: Yes (Hospitalization)
  Sender: FDA-Public Use
  Company Number: US-BAYER-2013-006832

PATIENT
  Age: 33 Year
  Sex: Female

DRUGS (7)
  1. YASMIN [Suspect]
  2. AUGMENTIN [Concomitant]
     Dosage: 875 MG, UNK
     Route: 048
     Dates: start: 20070913
  3. PROPOXYPHENE [Concomitant]
     Dosage: 650
     Route: 048
     Dates: start: 20070913
  4. CIPROFLOXACIN [Concomitant]
     Dosage: 500 MG, UNK
     Route: 048
     Dates: start: 20070913
  5. HYDROCODONE [Concomitant]
     Dosage: UNK
     Route: 048
     Dates: start: 20070918
  6. DOXYCYCLINE HYCLATE [Concomitant]
     Dosage: 100 MG, UNK
     Route: 048
     Dates: start: 20070918
  7. VICODIN [Concomitant]

REACTIONS (2)
  - Pulmonary embolism [Recovered/Resolved]
  - Deep vein thrombosis [Recovered/Resolved]
